FAERS Safety Report 23159922 (Version 2)
Quarter: 2023Q4

REPORT INFORMATION
  Report Type: Spontaneous
  Country: US (occurrence: US)
  Receive Date: 20231108
  Receipt Date: 20231121
  Transmission Date: 20240110
  Serious: No
  Sender: FDA-Public Use
  Company Number: US-VERTEX PHARMACEUTICALS-2023-016594

PATIENT
  Age: 32 Year
  Sex: Female

DRUGS (2)
  1. SYMDEKO [Suspect]
     Active Substance: IVACAFTOR\TEZACAFTOR
     Indication: Cystic fibrosis
     Dosage: UNK
     Route: 048
     Dates: start: 202208, end: 2023
  2. SYMDEKO [Suspect]
     Active Substance: IVACAFTOR\TEZACAFTOR
     Dosage: UNK
     Route: 048
     Dates: start: 20230628, end: 202309

REACTIONS (6)
  - Gastrointestinal tract irritation [Recovered/Resolved]
  - Abdominal pain upper [Recovered/Resolved]
  - Malabsorption [Recovered/Resolved]
  - Gastrointestinal pain [Recovered/Resolved]
  - Pancreatic steatosis [Recovered/Resolved]
  - Pleurisy [Unknown]

NARRATIVE: CASE EVENT DATE: 20230101
